FAERS Safety Report 23549841 (Version 1)
Quarter: 2024Q1

REPORT INFORMATION
  Report Type: Spontaneous
  Country: US (occurrence: None)
  Receive Date: 20240220
  Receipt Date: 20240220
  Transmission Date: 20240410
  Serious: No
  Sender: FDA-Public Use
  Company Number: None

PATIENT
  Age: 83 Year
  Sex: Female
  Weight: 71.55 kg

DRUGS (1)
  1. PROLIA [Suspect]
     Active Substance: DENOSUMAB
     Indication: Osteoporosis
     Dosage: OTHER FREQUENCY : EVERY 6 MONTHS;?
     Route: 058
     Dates: start: 20210527, end: 20230504

REACTIONS (2)
  - Groin pain [None]
  - Arthralgia [None]

NARRATIVE: CASE EVENT DATE: 20230518
